FAERS Safety Report 7569781-2 (Version None)
Quarter: 2011Q2

REPORT INFORMATION
  Report Type: 
  Country: None (occurrence: None)
  Receive Date: 20110624
  Receipt Date: 20110615
  Transmission Date: 20111010
  Serious: Yes (Other)
  Sender: FDA-Public Use
  Company Number: AU-JNJFOC-20110307638

PATIENT
  Sex: Male

DRUGS (3)
  1. STELARA [Suspect]
     Route: 058
     Dates: start: 20101102
  2. STELARA [Suspect]
     Route: 058
     Dates: start: 20110318
  3. STELARA [Suspect]
     Indication: PSORIATIC ARTHROPATHY
     Route: 058
     Dates: start: 20101130

REACTIONS (2)
  - DEPRESSION [None]
  - CARDIOMYOPATHY [None]
